FAERS Safety Report 12081857 (Version 2)
Quarter: 2016Q2

REPORT INFORMATION
  Report Type: Spontaneous
  Country: US (occurrence: US)
  Receive Date: 20160216
  Receipt Date: 20160426
  Transmission Date: 20160815
  Serious: Yes (Hospitalization, Other)
  Sender: FDA-Public Use
  Company Number: US-MYLANLABS-2016M1006848

PATIENT

DRUGS (2)
  1. IBRANCE [Suspect]
     Active Substance: PALBOCICLIB
     Indication: BREAST CANCER
     Dosage: 125 MG, QD
     Route: 048
     Dates: start: 20151103
  2. LETROZOLE. [Suspect]
     Active Substance: LETROZOLE
     Dosage: UNK

REACTIONS (6)
  - Malignant neoplasm progression [Not Recovered/Not Resolved]
  - White blood cell count decreased [Unknown]
  - Vomiting [Recovered/Resolved]
  - Infection [Unknown]
  - Haemoglobin decreased [Unknown]
  - Dehydration [Recovered/Resolved]

NARRATIVE: CASE EVENT DATE: 20151226
